FAERS Safety Report 9841519 (Version 2)
Quarter: 2014Q1

REPORT INFORMATION
  Report Type: Other
  Country: US (occurrence: US)
  Receive Date: 20140124
  Receipt Date: 20140307
  Transmission Date: 20141002
  Serious: Yes (Other)
  Sender: FDA-Public Use
  Company Number: US-SHIRE-ALL1-2014-00434

PATIENT
  Age: 50 Year
  Sex: Female
  Weight: 74.83 kg

DRUGS (11)
  1. VYVANSE [Suspect]
     Indication: ATTENTION DEFICIT/HYPERACTIVITY DISORDER
     Dosage: 20 MG, 1X/DAY:QD
     Route: 048
     Dates: start: 2011, end: 2011
  2. VYVANSE [Suspect]
     Dosage: UNK, UNKNOWN (ON AND OFF VYVANSE UNKNOWN NUMBER OF TIMES)
     Route: 048
     Dates: start: 2011, end: 2013
  3. VYVANSE [Suspect]
     Dosage: 50 MG, 1X/DAY:QD
     Route: 048
     Dates: start: 2013, end: 2013
  4. VYVANSE [Suspect]
     Dosage: 20 MG, 1X/DAY:QD
     Route: 048
     Dates: start: 2013, end: 2013
  5. VYVANSE [Suspect]
     Dosage: 30 MG, 1X/DAY:QD
     Route: 048
     Dates: start: 2013
  6. CYMBALTA [Concomitant]
     Indication: DEPRESSION
     Dosage: 60 MG, 1X/DAY:QD
     Route: 048
  7. CYMBALTA [Concomitant]
     Indication: ANXIETY
  8. CYMBALTA [Concomitant]
     Indication: BACK PAIN
  9. ATIVAN [Concomitant]
     Indication: ANXIETY
     Dosage: 0.5 MG, AS REQ^D (ONCE DAILY AS NEEDED)
     Route: 048
  10. VITAMIN D                          /00107901/ [Concomitant]
     Indication: VITAMIN D DECREASED
     Dosage: 1000 IU, 1X/DAY:QD
     Route: 065
  11. MAGNESIUM [Concomitant]
     Indication: MIGRAINE
     Dosage: 300 MG, 1X/DAY:QD
     Route: 065
     Dates: start: 2003

REACTIONS (11)
  - Drug withdrawal syndrome [Recovered/Resolved]
  - Chills [Recovered/Resolved]
  - Pain [Recovered/Resolved]
  - Influenza [Recovered/Resolved]
  - Tic [Not Recovered/Not Resolved]
  - Hyperhidrosis [Recovered/Resolved]
  - Palpitations [Recovered/Resolved]
  - Vomiting [Not Recovered/Not Resolved]
  - Drug ineffective [Not Recovered/Not Resolved]
  - Drug effect decreased [Not Recovered/Not Resolved]
  - Inappropriate schedule of drug administration [Recovered/Resolved]
